FAERS Safety Report 15676703 (Version 1)
Quarter: 2018Q4

REPORT INFORMATION
  Report Type: Spontaneous
  Country: AU (occurrence: AU)
  Receive Date: 20181130
  Receipt Date: 20181130
  Transmission Date: 20190205
  Serious: Yes (Other)
  Sender: FDA-Public Use
  Company Number: PHHY2018AU166152

PATIENT
  Age: 69 Year
  Sex: Female

DRUGS (1)
  1. HYDROXYCHLOROQUINE [Suspect]
     Active Substance: HYDROXYCHLOROQUINE
     Indication: LICHEN PLANOPILARIS
     Dosage: 500 MG, QD (11.4 MG/KG ACTUAL BODYWEIGHT)
     Route: 065

REACTIONS (2)
  - Product use in unapproved indication [Unknown]
  - Retinal toxicity [Unknown]
